FAERS Safety Report 22130356 (Version 1)
Quarter: 2023Q1

REPORT INFORMATION
  Report Type: Spontaneous
  Country: US (occurrence: US)
  Receive Date: 20230323
  Receipt Date: 20230323
  Transmission Date: 20230417
  Serious: No
  Sender: FDA-Public Use
  Company Number: US-TEVA-2023-US-2864278

PATIENT
  Age: 48 Year
  Sex: Female

DRUGS (1)
  1. LIDOCAINE [Suspect]
     Active Substance: LIDOCAINE
     Indication: Product used for unknown indication
     Dosage: PATCH
     Route: 065

REACTIONS (8)
  - Poor quality product administered [Unknown]
  - Device leakage [Unknown]
  - Product adhesion issue [Unknown]
  - Drug hypersensitivity [Unknown]
  - Application site rash [Unknown]
  - Application site pain [Unknown]
  - Application site vesicles [Unknown]
  - Adverse drug reaction [Unknown]
